FAERS Safety Report 21255896 (Version 1)
Quarter: 2022Q3

REPORT INFORMATION
  Report Type: Spontaneous
  Country: US (occurrence: US)
  Receive Date: 20220825
  Receipt Date: 20220825
  Transmission Date: 20221026
  Serious: Yes (Life-Threatening, Hospitalization, Other)
  Sender: FDA-Public Use
  Company Number: US-HORIZON THERAPEUTICS-HZN-2022-006446

PATIENT

DRUGS (7)
  1. RAYOS [Suspect]
     Active Substance: PREDNISONE
     Indication: Back pain
     Dosage: 50 MG, QD (5 DAYS OVER A 3-MONTH PERIOD)
     Route: 065
  2. HYDROCORTISONE [Suspect]
     Active Substance: HYDROCORTISONE
     Indication: Product used for unknown indication
     Dosage: 100 MG, SINGLE
     Route: 065
  3. HYDROCORTISONE [Suspect]
     Active Substance: HYDROCORTISONE
     Dosage: 50 MG, EVERY 6 HOURS
     Route: 065
  4. HYDROCORTISONE [Suspect]
     Active Substance: HYDROCORTISONE
     Dosage: 25 MG, EVERY 6 HOURS
     Route: 065
  5. DEXAMETHASONE [Suspect]
     Active Substance: DEXAMETHASONE
     Indication: Product used for unknown indication
     Dosage: 10 MG, BID
     Route: 065
  6. DEXAMETHASONE [Suspect]
     Active Substance: DEXAMETHASONE
     Dosage: 8 MG, BID
     Route: 065
  7. DEXAMETHASONE [Suspect]
     Active Substance: DEXAMETHASONE
     Dosage: 6 MG, SINGLE
     Route: 065

REACTIONS (8)
  - Acute respiratory distress syndrome [Recovered/Resolved]
  - Systemic candida [Recovered/Resolved]
  - Acute kidney injury [Recovered/Resolved]
  - Respiratory failure [Recovered/Resolved]
  - Septic shock [Recovered/Resolved]
  - Herpes simplex oesophagitis [Recovered/Resolved]
  - Herpes simplex [Recovered/Resolved]
  - Off label use [Unknown]
